FAERS Safety Report 5976659-4 (Version None)
Quarter: 2008Q4

REPORT INFORMATION
  Report Type: 
  Country: None (occurrence: None)
  Receive Date: 20081203
  Receipt Date: 20081124
  Transmission Date: 20090506
  Serious: Yes (Other)
  Sender: FDA-Public Use
  Company Number: US-JNJFOC-20081003180

PATIENT
  Age: 81 Year
  Sex: Female
  Weight: 70.31 kg

DRUGS (7)
  1. TYLENOL (CAPLET) [Suspect]
     Route: 048
  2. TYLENOL (CAPLET) [Suspect]
     Indication: ARTHRALGIA
     Route: 048
  3. COUMADIN [Concomitant]
     Indication: ATRIAL FIBRILLATION
  4. TOPROL-XL [Concomitant]
     Indication: ATRIAL FIBRILLATION
  5. GLUCOSAMINE CHONDROITIN [Concomitant]
     Indication: ARTHRITIS
  6. VITAMIN [Concomitant]
     Indication: MEDICAL DIET
  7. OSCAL [Concomitant]
     Indication: MEDICAL DIET

REACTIONS (2)
  - FOREIGN BODY TRAUMA [None]
  - WHEEZING [None]
